FAERS Safety Report 21743279 (Version 3)
Quarter: 2023Q1

REPORT INFORMATION
  Report Type: Spontaneous
  Country: NL (occurrence: NL)
  Receive Date: 20221217
  Receipt Date: 20230111
  Transmission Date: 20230417
  Serious: Yes (Hospitalization, Other)
  Sender: FDA-Public Use
  Company Number: NL-SA-2022SA484744

PATIENT
  Age: 84 Year
  Sex: Male

DRUGS (8)
  1. APIXABAN [Suspect]
     Active Substance: APIXABAN
     Indication: Product used for unknown indication
     Dosage: UNK, STOP DATE: UNKNOWN DATE IN 2022
     Route: 065
     Dates: end: 2022
  2. ATORVASTATIN [Suspect]
     Active Substance: ATORVASTATIN
     Indication: Product used for unknown indication
     Dosage: UNK, STOP DATE: UNKNOWN DATE IN 2022
     Route: 065
     Dates: end: 2022
  3. FOLIC ACID [Suspect]
     Active Substance: FOLIC ACID
     Indication: Product used for unknown indication
     Dosage: UNK, STOP DATE: UNKNOWN DATE IN 2022
     Route: 065
     Dates: end: 2022
  4. FUROSEMIDE [Suspect]
     Active Substance: FUROSEMIDE
     Indication: Product used for unknown indication
     Dosage: UNK, STOP DATE: UNKNOWN DATE IN 2022
     Route: 065
     Dates: end: 2022
  5. METOPROLOL [Suspect]
     Active Substance: METOPROLOL
     Indication: Product used for unknown indication
     Dosage: UNK, STOP DATE: UNKNOWN DATE IN 2022
     Route: 065
     Dates: end: 2022
  6. VALPROATE SODIUM [Suspect]
     Active Substance: VALPROATE SODIUM
     Indication: Epilepsy
     Dosage: UNK
     Route: 065
     Dates: end: 2022
  7. VALPROATE SODIUM [Suspect]
     Active Substance: VALPROATE SODIUM
     Dosage: UNK, STOP DATE: UNKNOWN DATE IN 2022
     Route: 065
     Dates: end: 2022
  8. CHOLECALCIFEROL [Suspect]
     Active Substance: CHOLECALCIFEROL
     Indication: Product used for unknown indication
     Dosage: UNK, STOP DATE: UNKNOWN DATE IN 2022
     Route: 065
     Dates: end: 2022

REACTIONS (2)
  - Dementia [Recovering/Resolving]
  - Cognitive disorder [Recovering/Resolving]

NARRATIVE: CASE EVENT DATE: 20210301
